FAERS Safety Report 23962535 (Version 6)
Quarter: 2024Q3

REPORT INFORMATION
  Report Type: Spontaneous
  Country: US (occurrence: US)
  Receive Date: 20240611
  Receipt Date: 20240919
  Transmission Date: 20241016
  Serious: Yes (Other)
  Sender: APELLIS PHARMACEUTICALS
  Company Number: US-APELLIS-2024-APL-0000163

PATIENT

DRUGS (1)
  1. SYFOVRE [Suspect]
     Active Substance: PEGCETACOPLAN
     Indication: Product used for unknown indication

REACTIONS (9)
  - Peripheral exudative haemorrhagic chorioretinopathy [Unknown]
  - Uveitis [Unknown]
  - Vitritis [Unknown]
  - Retinal haemorrhage [Unknown]
  - Visual impairment [Unknown]
  - Anterior chamber cell [Unknown]
  - Vitreous haemorrhage [Unknown]
  - Vitreous detachment [Unknown]
  - Retinal tear [Unknown]
